FAERS Safety Report 4917574-4 (Version None)
Quarter: 2006Q1

REPORT INFORMATION
  Report Type: 
  Country: None (occurrence: None)
  Receive Date: 20060221
  Receipt Date: 20060210
  Transmission Date: 20060701
  Serious: Yes (Hospitalization)
  Sender: FDA-Public Use
  Company Number: JP-JNJFOC-20060203702

PATIENT
  Sex: Female

DRUGS (12)
  1. CRAVIT [Suspect]
     Indication: BRONCHITIS
     Route: 048
     Dates: start: 20051028, end: 20051031
  2. PREDONINE [Concomitant]
     Indication: SJOGREN'S SYNDROME
     Route: 048
     Dates: start: 20051001
  3. PREDONINE [Concomitant]
     Route: 048
     Dates: start: 20051001
  4. BONALON [Concomitant]
     Indication: OSTEOPOROSIS
     Route: 048
     Dates: start: 20051001
  5. DEPAS [Concomitant]
     Route: 048
     Dates: start: 20051001
  6. PAXIL [Concomitant]
     Indication: DEPRESSION
     Route: 048
     Dates: start: 20051001
  7. LENDORMIN [Concomitant]
     Indication: INSOMNIA
     Route: 048
     Dates: start: 20051001
  8. GANATON [Concomitant]
     Route: 048
     Dates: start: 20051001
  9. GASTER [Concomitant]
     Route: 048
     Dates: start: 20051001
  10. MEROPEN [Concomitant]
     Route: 042
     Dates: start: 20051031
  11. DOGMATYL [Concomitant]
     Route: 048
  12. TRYPTANOL [Concomitant]
     Route: 048

REACTIONS (1)
  - MENINGITIS ASEPTIC [None]
